FAERS Safety Report 6719262-0 (Version None)
Quarter: 2010Q2

REPORT INFORMATION
  Report Type: 
  Country: None (occurrence: None)
  Receive Date: 20100507
  Receipt Date: 20100422
  Transmission Date: 20101027
  Serious: Yes (Other)
  Sender: FDA-Public Use
  Company Number: DSU-2010-01156

PATIENT
  Age: 59 Year
  Sex: Female
  Weight: 86.1834 kg

DRUGS (3)
  1. WELCHOL [Suspect]
     Indication: HYPERLIPIDAEMIA
     Dosage: 3750 MG (1875 MG, BID),PER ORAL
     Route: 048
     Dates: start: 20100120, end: 20100220
  2. ASPIRIN [Concomitant]
  3. MULTIVITAMIN [Concomitant]

REACTIONS (1)
  - SUICIDAL IDEATION [None]
